FAERS Safety Report 5772944-X (Version None)
Quarter: 2008Q2

REPORT INFORMATION
  Report Type: 
  Country: None (occurrence: None)
  Receive Date: 20080610
  Receipt Date: 20080605
  Transmission Date: 20081010
  Serious: Yes (Death)
  Sender: FDA-Public Use
  Company Number: 20085091

PATIENT
  Sex: Female

DRUGS (1)
  1. LIORESAL [Suspect]
     Indication: MUSCLE SPASTICITY
     Dosage: 195 MCG, DAILY, INTRATHECAL
     Route: 037

REACTIONS (9)
  - ASPIRATION [None]
  - BEDRIDDEN [None]
  - CARDIOPULMONARY FAILURE [None]
  - COGNITIVE DISORDER [None]
  - DISEASE PROGRESSION [None]
  - PUPILLARY REFLEX IMPAIRED [None]
  - RHINORRHOEA [None]
  - SECRETION DISCHARGE [None]
  - SPEECH DISORDER [None]
